FAERS Safety Report 20042268 (Version 3)
Quarter: 2022Q2

REPORT INFORMATION
  Report Type: Spontaneous
  Country: US (occurrence: US)
  Receive Date: 20211108
  Receipt Date: 20220620
  Transmission Date: 20220721
  Serious: Yes (Other)
  Sender: FDA-Public Use
  Company Number: US-GILEAD-2021-0555304

PATIENT
  Age: 60 Year
  Sex: Male
  Weight: 72.562 kg

DRUGS (11)
  1. TRUVADA [Suspect]
     Active Substance: EMTRICITABINE\TENOFOVIR DISOPROXIL FUMARATE
     Indication: HIV infection
     Dosage: UNK
     Route: 048
     Dates: start: 2004, end: 201409
  2. EMTRIVA [Concomitant]
     Active Substance: EMTRICITABINE
  3. EPIVIR [Concomitant]
     Active Substance: LAMIVUDINE
  4. JULUCA [Concomitant]
     Active Substance: DOLUTEGRAVIR SODIUM\RILPIVIRINE HYDROCHLORIDE
  5. VIRAMUNE [Concomitant]
     Active Substance: NEVIRAPINE
  6. ZIAGEN [Concomitant]
     Active Substance: ABACAVIR SULFATE
  7. ABACAVIR [Concomitant]
     Active Substance: ABACAVIR
  8. INSULIN NOS [Concomitant]
     Active Substance: INSULIN NOS
  9. LAMIVUDINE [Concomitant]
     Active Substance: LAMIVUDINE
  10. HYDRALAZINE [Concomitant]
     Active Substance: HYDRALAZINE HYDROCHLORIDE
  11. ROSUVASTATIN [Concomitant]
     Active Substance: ROSUVASTATIN

REACTIONS (12)
  - Chronic kidney disease [Not Recovered/Not Resolved]
  - Renal tubular dysfunction [Unknown]
  - Fanconi syndrome acquired [Not Recovered/Not Resolved]
  - Renal failure [Unknown]
  - Pain [Not Recovered/Not Resolved]
  - Emotional distress [Not Recovered/Not Resolved]
  - Anxiety [Not Recovered/Not Resolved]
  - Anhedonia [Not Recovered/Not Resolved]
  - Fatigue [Not Recovered/Not Resolved]
  - Asthenia [Not Recovered/Not Resolved]
  - Blood creatinine increased [Unknown]
  - Dyspnoea [Not Recovered/Not Resolved]

NARRATIVE: CASE EVENT DATE: 20140901
